FAERS Safety Report 5023249-6 (Version None)
Quarter: 2006Q2

REPORT INFORMATION
  Report Type: 
  Country: None (occurrence: None)
  Receive Date: 20060605
  Receipt Date: 20060522
  Transmission Date: 20061013
  Serious: Yes (Hospitalization)
  Sender: FDA-Public Use
  Company Number: GXKR2006GB02900

PATIENT
  Age: 73 Year
  Sex: Female

DRUGS (12)
  1. DOXYCYCLINE HCL [Suspect]
     Dosage: 100 MG, BID, ORAL
     Route: 048
     Dates: start: 20060419, end: 20060424
  2. CARBOCISTEINE [Suspect]
     Dosage: 750 MG, TID, ORAL
     Route: 048
     Dates: start: 20060420
  3. MONTELUKAST [Suspect]
     Dosage: 10 MG, ORAL
     Route: 048
  4. AMINOPHYLLINE [Suspect]
     Dosage: 225 MG, BID, ORAL
     Route: 048
     Dates: end: 20060424
  5. COMBIVENT [Concomitant]
  6. RISEDRONATE SODIUM [Concomitant]
  7. VALSARTAN [Concomitant]
  8. OMEPRAZOLE [Concomitant]
  9. ASPIRIN [Concomitant]
  10. SERETIDE (FLUTICASONE PROPIONATE, SALMETEROL XINAFOATE) [Concomitant]
  11. FLUVASTATIN [Concomitant]
  12. TRIMETHOPRIM [Concomitant]

REACTIONS (5)
  - ABDOMINAL PAIN UPPER [None]
  - DRUG LEVEL ABOVE THERAPEUTIC [None]
  - FLUSHING [None]
  - HYPOTENSION [None]
  - SUPRAVENTRICULAR TACHYCARDIA [None]
